FAERS Safety Report 8972125 (Version 1)
Quarter: 2012Q4

REPORT INFORMATION
  Report Type: 
  Country: AU (occurrence: AU)
  Receive Date: 20121219
  Receipt Date: 20121219
  Transmission Date: 20130627
  Serious: Yes (Hospitalization)
  Sender: FDA-Public Use
  Company Number: AU-ELI_LILLY_AND_COMPANY-AU201212004278

PATIENT
  Age: 70 Year
  Sex: Male

DRUGS (2)
  1. HUMALOG LISPRO [Suspect]
  2. HUMALOG 25% LISPRO, 75% NPL [Suspect]

REACTIONS (3)
  - Hospitalisation [Recovered/Resolved]
  - Blood glucose increased [Unknown]
  - Wrong drug administered [Unknown]
